FAERS Safety Report 5344245-5 (Version None)
Quarter: 2007Q2

REPORT INFORMATION
  Report Type: 
  Country: None (occurrence: None)
  Receive Date: 20070604
  Receipt Date: 20070524
  Transmission Date: 20071010
  Serious: Yes (Hospitalization, Other)
  Sender: FDA-Public Use
  Company Number: US-ROCHE-480593

PATIENT
  Age: 60 Year
  Sex: Female

DRUGS (4)
  1. TICLID [Suspect]
     Indication: STENT PLACEMENT
     Route: 048
     Dates: start: 20070122
  2. TICLOPIDINE HCL [Suspect]
     Indication: STENT PLACEMENT
     Dosage: DURATION REPORTED AS 'MONTH AND HALF'
     Route: 065
  3. ASPIRIN [Suspect]
     Indication: STENT PLACEMENT
     Dosage: IN COMBINATION WITH TICLID
     Route: 065
     Dates: start: 20070122
  4. ASPIRIN [Suspect]
     Dosage: TAKEN AFTER TRYING PLAVIX
     Route: 065

REACTIONS (7)
  - ABDOMINAL PAIN UPPER [None]
  - ARTERIAL OCCLUSIVE DISEASE [None]
  - CHOLECYSTECTOMY [None]
  - MYOCARDIAL INFARCTION [None]
  - PARAESTHESIA [None]
  - VENOUS OCCLUSION [None]
  - WEIGHT DECREASED [None]
